FAERS Safety Report 9201292 (Version 2)
Quarter: 2013Q2

REPORT INFORMATION
  Report Type: Spontaneous
  Country: US (occurrence: None)
  Receive Date: 20130322
  Receipt Date: 20130405
  Transmission Date: 20140414
  Serious: Yes (Other)
  Sender: FDA-Public Use
  Company Number: 2013035071

PATIENT
  Sex: Male

DRUGS (2)
  1. HUMATE-P [Suspect]
     Indication: VON WILLEBRAND^S DISEASE
     Dates: start: 20130313, end: 20130313
  2. HYDROCODONE (HYDROCODONE) [Concomitant]

REACTIONS (2)
  - Pruritus [None]
  - Feeling abnormal [None]
